FAERS Safety Report 17549949 (Version 4)
Quarter: 2020Q2

REPORT INFORMATION
  Report Type: Spontaneous
  Country: US (occurrence: US)
  Receive Date: 20200317
  Receipt Date: 20200507
  Transmission Date: 20200713
  Serious: No
  Sender: FDA-Public Use
  Company Number: US-PFIZER INC-2020114772

PATIENT
  Age: 73 Year
  Sex: Female
  Weight: 77 kg

DRUGS (2)
  1. METHOTREXATE. [Concomitant]
     Active Substance: METHOTREXATE
     Indication: PSORIASIS
     Dosage: UNK UNK, WEEKLY (ONCE A WEEK)
  2. XELJANZ XR [Suspect]
     Active Substance: TOFACITINIB CITRATE
     Indication: PSORIATIC ARTHROPATHY
     Dosage: 11 MG, 1X/DAY
     Route: 048

REACTIONS (6)
  - Weight increased [Unknown]
  - Psoriasis [Recovered/Resolved]
  - Arthritis [Recovered/Resolved]
  - Intentional product misuse [Unknown]
  - Alopecia [Unknown]
  - Mental disorder [Unknown]

NARRATIVE: CASE EVENT DATE: 20200301
